FAERS Safety Report 6756843-2 (Version None)
Quarter: 2010Q2

REPORT INFORMATION
  Report Type: 
  Country: None (occurrence: None)
  Receive Date: 20100604
  Receipt Date: 20100526
  Transmission Date: 20101027
  Serious: Yes (Hospitalization)
  Sender: FDA-Public Use
  Company Number: US-JNJCH-2010013206

PATIENT
  Age: 40 Year
  Sex: Female
  Weight: 58.1 kg

DRUGS (1)
  1. BENADRYL [Suspect]
     Indication: SLEEP DISORDER
     Dosage: TEXT:TWO PILLS 1X PER DAY
     Route: 048
     Dates: start: 20100325, end: 20100509

REACTIONS (9)
  - ABASIA [None]
  - CHEST PAIN [None]
  - DIZZINESS [None]
  - HEART RATE INCREASED [None]
  - MALAISE [None]
  - NAUSEA [None]
  - OFF LABEL USE [None]
  - VISION BLURRED [None]
  - VOMITING [None]
